FAERS Safety Report 4974845-3 (Version None)
Quarter: 2006Q1

REPORT INFORMATION
  Report Type: 
  Country: None (occurrence: None)
  Receive Date: 20060227
  Receipt Date: 20051011
  Transmission Date: 20060701
  Serious: Yes (Other)
  Sender: FDA-Public Use
  Company Number: USA0510110778

PATIENT
  Sex: Female

DRUGS (1)
  1. SYMBYAX [Suspect]
     Dosage: (1/D), ORAL
     Route: 048
     Dates: start: 20050407, end: 20051005

REACTIONS (1)
  - WEIGHT INCREASED [None]
